FAERS Safety Report 10202631 (Version 1)
Quarter: 2014Q2

REPORT INFORMATION
  Report Type: Spontaneous
  Country: US (occurrence: US)
  Receive Date: 20140528
  Receipt Date: 20140528
  Transmission Date: 20141212
  Serious: No
  Sender: FDA-Public Use
  Company Number: US-BAYER-2014-079162

PATIENT
  Age: 77 Year
  Sex: Male
  Weight: 81.63 kg

DRUGS (5)
  1. ALEVE TABLET [Suspect]
     Indication: ARTHRALGIA
     Route: 048
  2. ALEVE TABLET [Suspect]
     Indication: ARTHRALGIA
     Dosage: 5 DF, QD
     Route: 048
     Dates: start: 20140523, end: 20140523
  3. QUINAPRIL [Concomitant]
  4. CLOPIDOGREL [Concomitant]
  5. PRAVASTATIN [Concomitant]

REACTIONS (2)
  - Extra dose administered [None]
  - Drug ineffective [None]
